FAERS Safety Report 10995375 (Version 1)
Quarter: 2015Q2

REPORT INFORMATION
  Report Type: Spontaneous
  Country: CH (occurrence: CH)
  Receive Date: 20150407
  Receipt Date: 20150407
  Transmission Date: 20150821
  Serious: Yes (Hospitalization)
  Sender: FDA-Public Use
  Company Number: CHPA2015CH004320

PATIENT
  Age: 58 Year
  Sex: Male

DRUGS (7)
  1. VOLTAREN DOLO LIQUID 12.5MG [Suspect]
     Active Substance: DICLOFENAC POTASSIUM
     Indication: PRODUCT USED FOR UNKNOWN INDICATION
     Dosage: 12.5 MG, Q8H
     Route: 048
     Dates: start: 20150129, end: 20150131
  2. CO-AMOXI-MEPHA [Suspect]
     Active Substance: AMOXICILLIN\CLAVULANATE POTASSIUM
     Indication: PRODUCT USED FOR UNKNOWN INDICATION
     Dosage: 1000 MG, Q12H
     Route: 048
     Dates: start: 20150131, end: 20150206
  3. OLFEN [Suspect]
     Active Substance: DICLOFENAC SODIUM
     Indication: PRODUCT USED FOR UNKNOWN INDICATION
     Dosage: 50 MG, UNK
     Route: 048
  4. MEBUCAINE F [Suspect]
     Active Substance: BENOXINATE HYDROCHLORIDE\CETYLPYRIDINIUM CHLORIDE\TYROTHRICIN
     Indication: PRODUCT USED FOR UNKNOWN INDICATION
     Dosage: UNK
     Route: 048
     Dates: start: 20150128, end: 20150130
  5. TRIOFAN [Suspect]
     Active Substance: XYLOMETAZOLINE
     Indication: PRODUCT USED FOR UNKNOWN INDICATION
     Dosage: UNK
     Route: 045
     Dates: start: 20150128, end: 20150130
  6. NASENSPRAY NEO SPIRIG [Suspect]
     Active Substance: XYLOMETAZOLINE HYDROCHLORIDE
     Indication: PRODUCT USED FOR UNKNOWN INDICATION
     Dosage: 1 DF, Q8H
     Route: 045
     Dates: start: 20150201, end: 20150207
  7. NEO CITRAN GRIPPE / ERK?LTUNG F?R ERWACHSENE [Suspect]
     Active Substance: ACETAMINOPHEN\ASCORBIC ACID\PHENIRAMINE\PHENYLEPHRINE
     Indication: PRODUCT USED FOR UNKNOWN INDICATION
     Dosage: 1 DF, QD
     Route: 048
     Dates: start: 20150129, end: 20150130

REACTIONS (6)
  - Transaminases increased [Recovered/Resolved]
  - Pruritus generalised [Recovered/Resolved]
  - Blood alkaline phosphatase abnormal [Recovered/Resolved]
  - Hepatitis cholestatic [Recovered/Resolved]
  - Blood bilirubin abnormal [Recovered/Resolved]
  - Jaundice [Recovered/Resolved]

NARRATIVE: CASE EVENT DATE: 20150212
